FAERS Safety Report 8777327 (Version 2)
Quarter: 2012Q4

REPORT INFORMATION
  Report Type: 
  Country: FR (occurrence: FR)
  Receive Date: 20120911
  Receipt Date: 20121026
  Transmission Date: 20130627
  Serious: Yes (Hospitalization)
  Sender: FDA-Public Use
  Company Number: FR-JNJFOC-20120901333

PATIENT
  Age: 68 Year
  Sex: Male
  Weight: 85 kg

DRUGS (5)
  1. ZYTIGA [Suspect]
     Indication: PROSTATE CANCER
     Route: 048
     Dates: start: 20120824
  2. ZYTIGA [Suspect]
     Indication: PROSTATE CANCER
     Route: 048
     Dates: start: 20120705, end: 20120723
  3. SOLUPRED [Concomitant]
     Indication: PROSTATE CANCER
     Route: 065
     Dates: start: 20120824
  4. PARACETAMOL [Concomitant]
     Indication: PAIN
     Route: 065
     Dates: start: 20120824
  5. COVERSYL [Concomitant]
     Indication: HYPERTENSION
     Route: 048

REACTIONS (3)
  - Asthenia [Recovered/Resolved]
  - Myalgia [Unknown]
  - Bone pain [Recovered/Resolved]
